FAERS Safety Report 4824652-7 (Version None)
Quarter: 2005Q4

REPORT INFORMATION
  Report Type: 
  Country: None (occurrence: None)
  Receive Date: 20051012
  Receipt Date: 20050801
  Transmission Date: 20060501
  Serious: No
  Sender: FDA-Public Use
  Company Number: 2005S1000166

PATIENT
  Age: 46 Year
  Weight: 77.3 kg

DRUGS (2)
  1. CUBICIN [Suspect]
     Indication: POSTOPERATIVE WOUND INFECTION
     Dosage: 320 MG;Q24H;IV
     Route: 042
     Dates: start: 20050729, end: 20050101
  2. CLINDAMYCIN [Concomitant]

REACTIONS (5)
  - ANXIETY [None]
  - CHILLS [None]
  - ERYTHEMA [None]
  - FLUSHING [None]
  - RASH GENERALISED [None]
